FAERS Safety Report 26071700 (Version 2)
Quarter: 2025Q4

REPORT INFORMATION
  Report Type: Spontaneous
  Country: CA (occurrence: CA)
  Receive Date: 20251120
  Receipt Date: 20251125
  Transmission Date: 20260118
  Serious: Yes (Hospitalization, Other)
  Sender: BIOMARIN
  Company Number: CA-BIOMARINAP-CA-2025-168059

PATIENT
  Age: 9 Year
  Sex: Male
  Weight: 19.6 kg

DRUGS (1)
  1. VIMIZIM [Suspect]
     Active Substance: ELOSULFASE ALFA
     Indication: Mucopolysaccharidosis IV
     Dosage: 40 MILLIGRAM, QW
     Dates: start: 20190830

REACTIONS (5)
  - Medical device removal [Not Recovered/Not Resolved]
  - Adenotonsillectomy [Unknown]
  - Weight bearing difficulty [Unknown]
  - Pain [Unknown]
  - Oropharyngeal pain [Recovering/Resolving]

NARRATIVE: CASE EVENT DATE: 20251101
